FAERS Safety Report 15950242 (Version 1)
Quarter: 2019Q1

REPORT INFORMATION
  Report Type: Spontaneous
  Country: US (occurrence: US)
  Receive Date: 20190212
  Receipt Date: 20190212
  Transmission Date: 20190417
  Serious: Yes (Death, Other)
  Sender: FDA-Public Use
  Company Number: US-ASTRAZENECA-2019SE22670

PATIENT

DRUGS (2)
  1. VICTOZA [Suspect]
     Active Substance: LIRAGLUTIDE
     Route: 065
     Dates: start: 20140411, end: 20170123
  2. BYETTA [Suspect]
     Active Substance: EXENATIDE
     Route: 065
     Dates: start: 20110110, end: 20120719

REACTIONS (2)
  - Death [Fatal]
  - Pancreatic carcinoma [Unknown]
